FAERS Safety Report 8892504 (Version 1)
Quarter: 2012Q4

REPORT INFORMATION
  Report Type: 
  Country: US (occurrence: US)
  Receive Date: 20121107
  Receipt Date: 20121107
  Transmission Date: 20130627
  Serious: No
  Sender: FDA-Public Use
  Company Number: US-AMGEN-USASP2011057274

PATIENT
  Age: 87 Year

DRUGS (9)
  1. ENBREL [Suspect]
     Indication: PRODUCT USED FOR UNKNOWN INDICATION
     Dosage: 50 mg, qwk
     Route: 058
  2. ACTONEL [Concomitant]
     Dosage: 75 mg, UNK
  3. FOLIC ACID [Concomitant]
     Dosage: 1 mg, UNK
  4. PREDNISONE [Concomitant]
     Dosage: 5 mg, UNK
  5. NORVASC [Concomitant]
     Dosage: 5 mg, UNK
  6. PLAQUENIL                          /00072602/ [Concomitant]
     Dosage: 200 mg, UNK
  7. TRAZODONE [Concomitant]
     Dosage: 100 mg, UNK
  8. MULTIVITAMIN                       /00097801/ [Concomitant]
     Route: 048
  9. ENSURE                             /06184901/ [Concomitant]

REACTIONS (2)
  - Anxiety [Unknown]
  - Headache [Unknown]
